FAERS Safety Report 11661485 (Version 1)
Quarter: 2015Q4

REPORT INFORMATION
  Report Type: Spontaneous
  Country: US (occurrence: US)
  Receive Date: 20151026
  Receipt Date: 20151026
  Transmission Date: 20160304
  Serious: Yes (Disabling, Other)
  Sender: FDA-Public Use
  Company Number: US-BAYER-2015-446561

PATIENT
  Age: 30 Year
  Sex: Male

DRUGS (2)
  1. LEVAQUIN [Suspect]
     Active Substance: LEVOFLOXACIN
     Indication: PNEUMONIA
  2. AVELOX [Suspect]
     Active Substance: MOXIFLOXACIN HYDROCHLORIDE
     Indication: PNEUMONIA
     Dosage: UNK
     Route: 042

REACTIONS (18)
  - Cardiac failure congestive [None]
  - Neuropathy peripheral [None]
  - Pain [None]
  - Hypertension [None]
  - Paraesthesia [None]
  - Heart rate increased [None]
  - Hyperaesthesia [None]
  - Pulmonary pain [None]
  - Intentional overdose [None]
  - Mental disorder [None]
  - Impaired work ability [None]
  - Bedridden [None]
  - Panic reaction [None]
  - Panic attack [None]
  - Dyspnoea [None]
  - Impaired gastric emptying [None]
  - Tremor [None]
  - Anxiety [None]
